FAERS Safety Report 18440606 (Version 1)
Quarter: 2020Q4

REPORT INFORMATION
  Report Type: Report from Study
  Country: CA (occurrence: CA)
  Receive Date: 20201029
  Receipt Date: 20201029
  Transmission Date: 20210114
  Serious: Yes (Other)
  Sender: FDA-Public Use
  Company Number: CA-PFIZER INC-2020417074

PATIENT
  Age: 66 Year
  Sex: Male

DRUGS (9)
  1. AMLODIPINE BESILATE [Suspect]
     Active Substance: AMLODIPINE BESYLATE
     Dosage: UNK
     Route: 065
  2. SPIRIVA [Suspect]
     Active Substance: TIOTROPIUM BROMIDE MONOHYDRATE
     Dosage: 1 DF, 1X/DAY
     Route: 065
  3. JANUMET [Suspect]
     Active Substance: METFORMIN HYDROCHLORIDE\SITAGLIPTIN PHOSPHATE
     Dosage: UNK
     Route: 065
  4. LANTUS [Suspect]
     Active Substance: INSULIN GLARGINE
     Dosage: UNK
     Route: 065
  5. DIAMICRON [Suspect]
     Active Substance: GLICLAZIDE
     Dosage: UNK
     Route: 065
  6. VENTOLIN HFA [Suspect]
     Active Substance: ALBUTEROL SULFATE
     Dosage: UNK
     Route: 065
  7. SALBUTAMOL SULFATE [Suspect]
     Active Substance: ALBUTEROL SULFATE
     Dosage: 2 DF, 2X/DAY
     Route: 065
  8. ADVAIR HFA [Suspect]
     Active Substance: FLUTICASONE PROPIONATE\SALMETEROL XINAFOATE
     Dosage: 2 DF, 2X/DAY
     Route: 065
  9. COVERSYL PLUS [INDAPAMIDE;PERINDOPRIL ERBUMINE] [Suspect]
     Active Substance: INDAPAMIDE\PERINDOPRIL
     Dosage: UNK
     Route: 065

REACTIONS (23)
  - Lung opacity [Unknown]
  - Therapeutic product effect incomplete [Unknown]
  - Eosinophilia [Unknown]
  - Lung diffusion test decreased [Unknown]
  - Wheezing [Unknown]
  - Osteoarthritis [Unknown]
  - Pulmonary mass [Unknown]
  - Type 2 diabetes mellitus [Unknown]
  - Flatulence [Unknown]
  - Pneumonitis [Unknown]
  - Chronic obstructive pulmonary disease [Unknown]
  - Neutrophilia [Unknown]
  - Respiratory symptom [Unknown]
  - Hypertension [Unknown]
  - Blood count abnormal [Unknown]
  - Flour sensitivity [Unknown]
  - Asthma [Unknown]
  - Cough [Unknown]
  - Emphysema [Unknown]
  - Spinal osteoarthritis [Unknown]
  - Dyspnoea at rest [Unknown]
  - Obstructive airways disorder [Unknown]
  - Oxygen saturation decreased [Unknown]
